FAERS Safety Report 7929687-3 (Version None)
Quarter: 2011Q4

REPORT INFORMATION
  Report Type: 
  Country: None (occurrence: None)
  Receive Date: 20111121
  Receipt Date: 20111117
  Transmission Date: 20120403
  Serious: Yes (Other)
  Sender: FDA-Public Use
  Company Number: JP-PFIZER INC-2011281864

PATIENT
  Age: 75 Year
  Sex: Male

DRUGS (5)
  1. LEVOLEUCOVORIN CALCIUM [Concomitant]
     Indication: LARGE INTESTINE CARCINOMA
     Dosage: 200 MG/M2, UNK
     Route: 041
     Dates: start: 20110801, end: 20111101
  2. CAMPTOSAR [Suspect]
     Indication: LARGE INTESTINE CARCINOMA
     Dosage: 150 MG/M2, UNK
     Route: 041
     Dates: start: 20110801, end: 20111101
  3. FLUOROURACIL [Suspect]
     Dosage: 2400 MG/M2/D1-2
     Route: 041
     Dates: start: 20110801, end: 20111101
  4. FLUOROURACIL [Suspect]
     Indication: LARGE INTESTINE CARCINOMA
     Dosage: 400 MG/M2, UNK
     Route: 040
     Dates: start: 20010801, end: 20111101
  5. PANITUMUMAB [Suspect]
     Indication: LARGE INTESTINE CARCINOMA
     Dosage: 6 MG/KG, UNK
     Route: 041
     Dates: start: 20110801, end: 20111101

REACTIONS (1)
  - ENTEROCOLITIS HAEMORRHAGIC [None]
